FAERS Safety Report 8089831-7 (Version None)
Quarter: 2012Q1

REPORT INFORMATION
  Report Type: 
  Country: None (occurrence: None)
  Receive Date: 20120128
  Receipt Date: 20110617
  Transmission Date: 20120608
  Serious: No
  Sender: FDA-Public Use
  Company Number: US-ABBOTT-11P-163-0733732-00

PATIENT
  Sex: Female
  Weight: 65.83 kg

DRUGS (9)
  1. UNKNOWN BIRTH CONTROL [Concomitant]
     Indication: CONTRACEPTION
     Route: 048
  2. HUMIRA [Suspect]
     Indication: CROHN'S DISEASE
     Route: 058
     Dates: start: 20110517, end: 20110517
  3. HUMIRA [Suspect]
     Route: 058
     Dates: start: 20110614
  4. MERCAPTOPURINE [Concomitant]
     Indication: CROHN'S DISEASE
  5. CALCIUM [Concomitant]
     Indication: MINERAL SUPPLEMENTATION
     Route: 048
  6. MULTI-VITAMIN [Concomitant]
     Indication: VITAMIN SUPPLEMENTATION
     Route: 048
  7. GLUCOSAMINE [Concomitant]
     Indication: SUPPLEMENTATION THERAPY
     Route: 048
  8. CYMBALTA [Concomitant]
     Indication: DEPRESSION
     Route: 048
  9. HUMIRA [Suspect]
     Route: 058
     Dates: start: 20110531, end: 20110531

REACTIONS (7)
  - HOT FLUSH [None]
  - INJECTION SITE PRURITUS [None]
  - PRESYNCOPE [None]
  - INJECTION SITE REACTION [None]
  - DIZZINESS [None]
  - HYPERHIDROSIS [None]
  - INJECTION SITE OEDEMA [None]
